FAERS Safety Report 7388322-6 (Version None)
Quarter: 2011Q2

REPORT INFORMATION
  Report Type: 
  Country: None (occurrence: None)
  Receive Date: 20110401
  Receipt Date: 20110323
  Transmission Date: 20111010
  Serious: Yes (Other)
  Sender: FDA-Public Use
  Company Number: US-TEVA-268185USA

PATIENT
  Sex: Female

DRUGS (1)
  1. CLARAVIS [Suspect]
     Route: 048
     Dates: start: 20110211, end: 20110221

REACTIONS (1)
  - UNINTENDED PREGNANCY [None]
